FAERS Safety Report 8740882 (Version 2)
Quarter: 2012Q4

REPORT INFORMATION
  Report Type: 
  Country: JP (occurrence: JP)
  Receive Date: 20120823
  Receipt Date: 20121112
  Transmission Date: 20130627
  Serious: Yes (Other)
  Sender: FDA-Public Use
  Company Number: JP-009507513-2012SP028035

PATIENT
  Age: 52 Year
  Sex: Female
  Weight: 56 kg

DRUGS (8)
  1. PEGINTRON [Suspect]
     Indication: HEPATITIS C
     Dosage: 1.5 Microgram per kilogram, qw
     Route: 058
     Dates: start: 20120319, end: 20120416
  2. REBETOL [Suspect]
     Indication: HEPATITIS C
     Dosage: 600 mg, qd
     Route: 048
     Dates: start: 20120319, end: 20120416
  3. TELAVIC [Suspect]
     Indication: HEPATITIS C
     Dosage: 2250 mg, qd
     Route: 048
     Dates: start: 20120319, end: 20120329
  4. TELAVIC [Suspect]
     Dosage: 1500 mg, qd
     Route: 048
     Dates: start: 20120330, end: 20120416
  5. L CARTIN [Concomitant]
     Indication: PROPHYLAXIS
     Dosage: 900 mg, qd
     Route: 048
     Dates: start: 20120319, end: 20120416
  6. PARIET [Concomitant]
     Dosage: 10 mg, qd
     Route: 048
     Dates: start: 20120319, end: 20120416
  7. REBAMIPIDE [Concomitant]
     Dosage: 300 mg, qd
     Route: 048
     Dates: start: 20120319, end: 20120416
  8. PRIMPERAN [Concomitant]
     Indication: PRODUCT USED FOR UNKNOWN INDICATION
     Dosage: THREE TABLETS PER DAY
     Route: 065
     Dates: start: 20120320, end: 20120416

REACTIONS (3)
  - Dysgeusia [Recovered/Resolved]
  - Nausea [Recovered/Resolved]
  - Decreased appetite [Recovered/Resolved]
